FAERS Safety Report 9259723 (Version 3)
Quarter: 2013Q3

REPORT INFORMATION
  Report Type: Spontaneous
  Country: US (occurrence: US)
  Receive Date: 20130429
  Receipt Date: 20130709
  Transmission Date: 20140515
  Serious: Yes (Hospitalization)
  Sender: FDA-Public Use
  Company Number: US-BIOGENIDEC-2013BI037185

PATIENT
  Age: 44 Year
  Sex: Male

DRUGS (2)
  1. TYSABRI [Suspect]
     Indication: MULTIPLE SCLEROSIS
     Route: 042
     Dates: start: 20130412, end: 20130513
  2. PAIN MEDICATION (NOS) [Concomitant]

REACTIONS (4)
  - Multiple sclerosis relapse [Recovered/Resolved]
  - Mental impairment [Not Recovered/Not Resolved]
  - Narcolepsy [Not Recovered/Not Resolved]
  - Aphasia [Recovered/Resolved]
